FAERS Safety Report 8419553-1 (Version None)
Quarter: 2012Q2

REPORT INFORMATION
  Report Type: 
  Country: None (occurrence: None)
  Receive Date: 20120604
  Receipt Date: 20120604
  Transmission Date: 20120825
  Serious: Yes (Other)
  Sender: FDA-Public Use
  Company Number: None

PATIENT
  Age: 48 Year
  Sex: Male
  Weight: 97.5234 kg

DRUGS (1)
  1. AZITHROMYCIN [Suspect]

REACTIONS (6)
  - PERICARDITIS [None]
  - SUPRAVENTRICULAR EXTRASYSTOLES [None]
  - SUPRAVENTRICULAR TACHYCARDIA [None]
  - PALPITATIONS [None]
  - COLD SWEAT [None]
  - ATRIAL TACHYCARDIA [None]
